FAERS Safety Report 13302833 (Version 1)
Quarter: 2020Q3

REPORT INFORMATION
  Report Type: Spontaneous
  Country: ES (occurrence: ES)
  Receive Date: 20170307
  Receipt Date: 20170307
  Transmission Date: 20201104
  Serious: Yes (Hospitalization, Other)
  Sender: FDA-Public Use
  Company Number: ES-AMGEN-ESPSP2017032221

PATIENT
  Age: 70 Year
  Sex: Female

DRUGS (7)
  1. NASACORT [Concomitant]
     Active Substance: TRIAMCINOLONE ACETONIDE
     Indication: RHINITIS ALLERGIC
     Dosage: 55 MUG, UNK
     Route: 045
     Dates: start: 201410
  2. EBASTEL FORTE [Concomitant]
     Indication: RHINITIS ALLERGIC
     Route: 048
     Dates: start: 200705
  3. PROLIA [Suspect]
     Active Substance: DENOSUMAB
     Indication: OSTEOPOROSIS
     Dosage: 60 MG, UNK
     Route: 065
     Dates: start: 20151021
  4. DOLOCATIL [Concomitant]
     Active Substance: ACETAMINOPHEN
     Indication: PAIN
     Dosage: 3 G, UNK
     Route: 048
     Dates: start: 20100420
  5. ESOMEPRAZOL [Concomitant]
     Active Substance: ESOMEPRAZOLE
     Indication: GASTRITIS PROPHYLAXIS
     Route: 048
     Dates: start: 20131218
  6. IBANDRONIC ACID. [Suspect]
     Active Substance: IBANDRONIC ACID
     Indication: OSTEOPOROSIS
     Route: 048
     Dates: start: 201012, end: 20150515
  7. SERETIDE [Concomitant]
     Active Substance: FLUTICASONE PROPIONATE\SALMETEROL XINAFOATE
     Indication: ASTHMA
     Dosage: 25 MUG/125 MUG, UNK
     Route: 055
     Dates: start: 201301

REACTIONS (1)
  - Osteonecrosis of jaw [Recovering/Resolving]

NARRATIVE: CASE EVENT DATE: 20151110
